FAERS Safety Report 24388549 (Version 5)
Quarter: 2025Q1

REPORT INFORMATION
  Report Type: Spontaneous
  Country: NO (occurrence: NO)
  Receive Date: 20241002
  Receipt Date: 20250101
  Transmission Date: 20250409
  Serious: Yes (Death, Life-Threatening, Hospitalization, Disabling, Other)
  Sender: BRISTOL-MYERS SQUIBB COMPANY
  Company Number: NO-BRISTOL-MYERS SQUIBB COMPANY-2024-154642

PATIENT
  Age: 79 Year
  Sex: Male

DRUGS (2)
  1. NIVOLUMAB [Suspect]
     Active Substance: NIVOLUMAB
     Indication: Transitional cell carcinoma metastatic
     Dosage: 2ND LINE
     Dates: start: 20240426, end: 20240823
  2. ACETAMINOPHEN [Concomitant]
     Active Substance: ACETAMINOPHEN
     Indication: Product used for unknown indication

REACTIONS (3)
  - Back pain [Recovered/Resolved]
  - Hepatitis [Fatal]
  - Pancreatitis [Unknown]

NARRATIVE: CASE EVENT DATE: 20240919
